FAERS Safety Report 23403724 (Version 1)
Quarter: 2024Q1

REPORT INFORMATION
  Report Type: Other
  Country: US (occurrence: None)
  Receive Date: 20240116
  Receipt Date: 20240116
  Transmission Date: 20240410
  Serious: Yes (Death)
  Sender: FDA-Public Use
  Company Number: US-ROCHE-3490814

PATIENT
  Age: 57 Year
  Sex: Male

DRUGS (7)
  1. COTELLIC [Suspect]
     Active Substance: COBIMETINIB
     Indication: Malignant melanoma
     Dosage: TAKE 3 TABLETS(60 MG TOTAL BY MOUTH DAILY FOR 63 DAYS
     Route: 048
  2. ESTRACE [Concomitant]
     Active Substance: ESTRADIOL
  3. PROSCAR [Concomitant]
     Active Substance: FINASTERIDE
  4. NORCO [Concomitant]
     Active Substance: ACETAMINOPHEN\HYDROCODONE BITARTRATE
  5. PRILOSEC [Concomitant]
     Active Substance: OMEPRAZOLE MAGNESIUM
  6. ALDACTONE [Concomitant]
     Active Substance: SPIRONOLACTONE
  7. MORNIFLUMATE [Concomitant]
     Active Substance: MORNIFLUMATE

REACTIONS (1)
  - Death [Fatal]

NARRATIVE: CASE EVENT DATE: 20240109
